FAERS Safety Report 6849212-8 (Version None)
Quarter: 2010Q3

REPORT INFORMATION
  Report Type: 
  Country: None (occurrence: None)
  Receive Date: 20100716
  Receipt Date: 20091020
  Transmission Date: 20110219
  Serious: Yes (Hospitalization, Other)
  Sender: FDA-Public Use
  Company Number: US-PFIZER INC-2007081615

PATIENT
  Sex: Female
  Weight: 71 kg

DRUGS (19)
  1. CHANTIX [Suspect]
     Indication: SMOKING CESSATION THERAPY
     Dosage: 1 MG, 2X/DAY
     Dates: start: 20070601, end: 20070801
  2. CHANTIX [Suspect]
     Dosage: 0.5 MG, 1X/DAY
     Route: 048
     Dates: start: 20091017
  3. INFLUENZA VACCINE [Suspect]
     Dosage: UNK
     Dates: start: 20091013, end: 20091013
  4. CYTOXAN [Concomitant]
  5. POTASSIUM [Concomitant]
  6. CYMBALTA [Concomitant]
  7. SIMVASTATIN [Concomitant]
  8. PREDNISONE [Concomitant]
  9. RANITIDINE [Concomitant]
  10. AMILORIDE [Concomitant]
  11. FUROSEMIDE [Concomitant]
  12. PROTONIX [Concomitant]
  13. METHADONE [Concomitant]
  14. OXYCODONE [Concomitant]
  15. KLONOPIN [Concomitant]
  16. HUMIRA [Concomitant]
  17. FLU ^WYETH^ [Concomitant]
     Dates: start: 20091013
  18. ORENCIA [Concomitant]
     Indication: ARTHRITIS
     Dosage: FREQUENCY: MONTHLY,
     Route: 042
  19. METHOTREXATE SODIUM [Concomitant]
     Indication: ARTHRITIS
     Dosage: UNK

REACTIONS (8)
  - ANAEMIA [None]
  - CHEST PAIN [None]
  - DEHYDRATION [None]
  - ERYTHEMA [None]
  - HEADACHE [None]
  - PRURITUS [None]
  - RASH [None]
  - WHITE BLOOD CELL COUNT INCREASED [None]
